FAERS Safety Report 5262299-1 (Version None)
Quarter: 2007Q1

REPORT INFORMATION
  Report Type: 
  Country: None (occurrence: None)
  Receive Date: 20070312
  Receipt Date: 20070226
  Transmission Date: 20070707
  Serious: Yes (Hospitalization)
  Sender: FDA-Public Use
  Company Number: PHRM2007FR00915

PATIENT
  Age: 87 Year
  Sex: Female
  Weight: 50 kg

DRUGS (9)
  1. AMLODIPINE [Suspect]
     Dosage: 5 MG, QD
     Route: 048
  2. CLARITIN [Suspect]
     Dosage: 10 MG, QD
     Route: 048
     Dates: end: 20070115
  3. VASTAREL [Suspect]
     Dosage: 35 MG, BID
     Route: 048
     Dates: end: 20070106
  4. MOPRAL [Concomitant]
     Dosage: 20 MG, QD
     Route: 048
  5. KARDEGIC [Concomitant]
     Dosage: 75 MG, QD
     Route: 048
  6. ESIDRIX [Suspect]
     Dosage: 25 MG, QD
     Route: 048
  7. LASIX [Suspect]
     Dosage: 20 MG/DAY
     Route: 048
  8. XANAX [Suspect]
     Dosage: 0.25 MG/DAY
     Route: 048
     Dates: end: 20070117
  9. STABLON [Suspect]
     Dosage: 12.5 MG, QD
     Route: 048

REACTIONS (4)
  - DIZZINESS [None]
  - FALL [None]
  - MALAISE [None]
  - WOUND [None]
